FAERS Safety Report 6370694-2 (Version None)
Quarter: 2009Q3

REPORT INFORMATION
  Report Type: 
  Country: None (occurrence: None)
  Receive Date: 20090923
  Receipt Date: 20070330
  Transmission Date: 20100115
  Serious: Yes (Hospitalization)
  Sender: FDA-Public Use
  Company Number: US-ASTRAZENECA-2006UW25302

PATIENT
  Age: 20180 Day
  Sex: Male
  Weight: 68 kg

DRUGS (31)
  1. SEROQUEL [Suspect]
     Indication: HALLUCINATION, AUDITORY
     Route: 048
     Dates: start: 19980101
  2. SEROQUEL [Suspect]
     Dosage: 100 - 300 MG
     Route: 048
     Dates: start: 20050106
  3. RISPERDAL [Concomitant]
     Route: 065
  4. PROZAC [Concomitant]
     Route: 065
  5. ACETAMINOPHEN [Concomitant]
     Dosage: 30 - 300 MG
     Route: 048
  6. VIAGRA [Concomitant]
     Route: 048
  7. CELEBREX [Concomitant]
     Route: 048
  8. CLOTRIMAZOLE [Concomitant]
     Route: 048
  9. LEVAQUIN [Concomitant]
     Route: 048
  10. IBUPROFEN [Concomitant]
     Route: 048
  11. HYDROCODONE [Concomitant]
     Dosage: 5 - 500 MG
     Route: 048
  12. NASACORT [Concomitant]
     Route: 048
  13. ERY-TAB [Concomitant]
     Route: 048
  14. DIPHENHYDRAMINE HCL [Concomitant]
     Route: 048
  15. ACIPHEX [Concomitant]
     Route: 048
  16. FOLIC ACID [Concomitant]
     Route: 048
  17. NEO/POLYMYXIN/DEXAMETH [Concomitant]
     Route: 065
  18. NITROGLYCERIN [Concomitant]
     Route: 048
  19. PREDNISOLONE [Concomitant]
     Route: 048
  20. EFFEXOR [Concomitant]
     Route: 048
  21. PSEUDOEPHEDRINE HCL [Concomitant]
     Route: 048
  22. AMBIEN [Concomitant]
     Route: 048
  23. FLUOXETINE [Concomitant]
     Route: 048
  24. BUSPIRONE HCL [Concomitant]
     Route: 048
  25. PROMETHAZINE [Concomitant]
     Route: 048
  26. CEPHALEXIN [Concomitant]
     Route: 048
  27. CIALIS [Concomitant]
     Route: 048
  28. NEXIUM [Concomitant]
     Route: 048
  29. CLONAZEPAM [Concomitant]
     Route: 048
  30. ACTOS [Concomitant]
     Route: 048
  31. PROMETHAZINE W/ CODEINE [Concomitant]
     Route: 048

REACTIONS (3)
  - BACK PAIN [None]
  - DIABETES MELLITUS [None]
  - SUICIDE ATTEMPT [None]
